FAERS Safety Report 5151036-7 (Version None)
Quarter: 2006Q4

REPORT INFORMATION
  Report Type: 
  Country: None (occurrence: None)
  Receive Date: 20061113
  Receipt Date: 20061113
  Transmission Date: 20070319
  Serious: Yes (Hospitalization)
  Sender: FDA-Public Use
  Company Number: None

PATIENT
  Age: 54 Year
  Sex: Male
  Weight: 88 kg

DRUGS (4)
  1. METOPROLOL SUCCINATE [Suspect]
     Indication: CORONARY ARTERY DISEASE
     Dosage: 25MG  BID PO
     Route: 048
  2. METOPROLOL SUCCINATE [Suspect]
     Indication: HYPERTENSION
     Dosage: 25MG  BID PO
     Route: 048
  3. LISINOPRIL [Suspect]
     Indication: CORONARY ARTERY DISEASE
     Dosage: 20MG QD PO
     Route: 048
  4. LISINOPRIL [Suspect]
     Indication: HYPERTENSION
     Dosage: 20MG QD PO
     Route: 048

REACTIONS (9)
  - BLOOD PRESSURE ORTHOSTATIC ABNORMAL [None]
  - BRADYCARDIA [None]
  - CARDIAC VALVE DISEASE [None]
  - DIZZINESS POSTURAL [None]
  - ELECTROCARDIOGRAM PR PROLONGATION [None]
  - HEPATITIS C [None]
  - HYPOTENSION [None]
  - MYOCARDIAL INFARCTION [None]
  - PRESYNCOPE [None]
